FAERS Safety Report 9703635 (Version 1)
Quarter: 2013Q4

REPORT INFORMATION
  Report Type: Spontaneous
  Country: US (occurrence: US)
  Receive Date: 20131122
  Receipt Date: 20131122
  Transmission Date: 20140711
  Serious: No
  Sender: FDA-Public Use
  Company Number: US-009507513-1311USA008842

PATIENT
  Sex: Female
  Weight: 54.42 kg

DRUGS (1)
  1. IMPLANON [Suspect]
     Indication: CONTRACEPTION
     Dosage: 3 YEAR IMPLANT IN THE LEFT  ARM
     Route: 059
     Dates: start: 20130417

REACTIONS (3)
  - Headache [Unknown]
  - Menstruation delayed [Unknown]
  - Abdominal pain lower [Unknown]
